FAERS Safety Report 17443935 (Version 1)
Quarter: 2020Q1

REPORT INFORMATION
  Report Type: Spontaneous
  Country: US (occurrence: US)
  Receive Date: 20200220
  Receipt Date: 20200220
  Transmission Date: 20200409
  Serious: Yes (Life-Threatening, Hospitalization, Disabling, Other)
  Sender: FDA-Public Use
  Company Number: None

PATIENT
  Age: 72 Year
  Sex: Male
  Weight: 89.4 kg

DRUGS (1)
  1. ENFORTUMAB-VEDOTIN [Suspect]
     Active Substance: ENFORTUMAB VEDOTIN
     Indication: TRANSITIONAL CELL CARCINOMA
     Dosage: ?          OTHER FREQUENCY:DAY 1, 8, 15;?
     Route: 041
     Dates: start: 20200204, end: 20200211

REACTIONS (14)
  - Rash erythematous [None]
  - Hyperglycaemia [None]
  - Atrial fibrillation [None]
  - Blister [None]
  - Cough [None]
  - Metastases to lung [None]
  - Transitional cell carcinoma [None]
  - Stevens-Johnson syndrome [None]
  - Renal impairment [None]
  - Pyrexia [None]
  - Hyponatraemia [None]
  - Rash pruritic [None]
  - Skin exfoliation [None]
  - Diarrhoea [None]

NARRATIVE: CASE EVENT DATE: 20200218
